FAERS Safety Report 12139761 (Version 2)
Quarter: 2016Q2

REPORT INFORMATION
  Report Type: Report from Study
  Country: US (occurrence: US)
  Receive Date: 20160303
  Receipt Date: 20160419
  Transmission Date: 20160815
  Serious: Yes (Hospitalization, Other)
  Sender: FDA-Public Use
  Company Number: US-GILEAD-2016-0201351

PATIENT
  Age: 58 Year
  Sex: Male

DRUGS (1)
  1. AMBRISENTAN [Suspect]
     Active Substance: AMBRISENTAN
     Indication: PULMONARY ARTERIAL HYPERTENSION
     Dosage: 10 MG, QD
     Route: 065
     Dates: start: 20151118, end: 20160215

REACTIONS (6)
  - Dyspnoea [Unknown]
  - Apnoea [Unknown]
  - Condition aggravated [Unknown]
  - Cardiac failure congestive [Not Recovered/Not Resolved]
  - Oedema peripheral [Unknown]
  - No therapeutic response [Not Recovered/Not Resolved]

NARRATIVE: CASE EVENT DATE: 20160101
